FAERS Safety Report 6111859-4 (Version None)
Quarter: 2009Q1

REPORT INFORMATION
  Report Type: 
  Country: None (occurrence: None)
  Receive Date: 20090311
  Receipt Date: 20090302
  Transmission Date: 20090719
  Serious: Yes (Other)
  Sender: FDA-Public Use
  Company Number: ES-ASTRAZENECA-2009AC00690

PATIENT
  Age: 45 Year
  Sex: Male

DRUGS (5)
  1. OMEPRAZOLE [Suspect]
     Indication: DYSPEPSIA
     Route: 065
  2. ATAZANAVIR SULFATE [Interacting]
     Indication: HIV INFECTION
     Route: 065
  3. TENOFOVIR DISOPROXIL FUMARATE [Concomitant]
     Indication: HIV INFECTION
     Route: 065
  4. EMTRICITABINE [Concomitant]
     Indication: HIV INFECTION
     Route: 065
  5. RITONAVIR [Concomitant]
     Indication: HIV INFECTION
     Route: 065

REACTIONS (2)
  - DRUG INTERACTION [None]
  - VIRAL LOAD INCREASED [None]
